FAERS Safety Report 7547177-7 (Version None)
Quarter: 2011Q2

REPORT INFORMATION
  Report Type: 
  Country: None (occurrence: None)
  Receive Date: 20110614
  Receipt Date: 20110531
  Transmission Date: 20111010
  Serious: Yes (Hospitalization, Other)
  Sender: FDA-Public Use
  Company Number: PHHY2011FR27974

PATIENT
  Age: 55 Year
  Sex: Female

DRUGS (7)
  1. ACETAMINOPHEN [Suspect]
     Indication: MYALGIA
     Dosage: 7 G, DAILY
     Route: 048
     Dates: start: 20090819, end: 20090826
  2. TRAMADOL HCL [Concomitant]
     Indication: MYALGIA
     Dosage: 375 MG, DAILY
     Route: 048
     Dates: start: 20090819, end: 20090826
  3. DEXTROPROPOXYPHENE [Concomitant]
     Indication: MYALGIA
     Dosage: 300 MG, DAILY
     Route: 048
     Dates: start: 20090819, end: 20090826
  4. FEMARA [Suspect]
     Indication: BREAST CANCER
     Dosage: 1 DF, QD
     Dates: start: 20100101
  5. SOTALOL HCL [Concomitant]
     Dosage: UNK
  6. AROMASIN [Suspect]
     Indication: BREAST CANCER
     Dosage: 25 MG, DAILY
     Route: 048
     Dates: start: 20090630, end: 20090826
  7. ROSUVASTATIN [Concomitant]
     Indication: TYPE IIA HYPERLIPIDAEMIA
     Dosage: UNK

REACTIONS (1)
  - PANCREATITIS [None]
